FAERS Safety Report 4588965-9 (Version None)
Quarter: 2005Q1

REPORT INFORMATION
  Report Type: 
  Country: None (occurrence: None)
  Receive Date: 20050125
  Receipt Date: 20041025
  Transmission Date: 20050727
  Serious: No
  Sender: FDA-Public Use
  Company Number: USA030741476

PATIENT
  Age: 58 Year
  Sex: Female
  Weight: 51 kg

DRUGS (10)
  1. FORTEO [Suspect]
     Indication: OSTEOPOROSIS
     Dosage: 20 UG DAY
     Dates: start: 20030701, end: 20041001
  2. ACTONEL [Concomitant]
  3. CALCIUM GLUCONATE [Concomitant]
  4. NEXIUM [Concomitant]
  5. ACTIVELLA [Concomitant]
  6. VITAMIN E [Concomitant]
  7. VITAMIN B-12 [Concomitant]
  8. SELENIUM TRACE METAL ADDITIVE [Concomitant]
  9. LYSINE [Concomitant]
  10. MAGNESIUM [Concomitant]

REACTIONS (14)
  - BACK INJURY [None]
  - BLOOD PRESSURE DECREASED [None]
  - CHILLS [None]
  - DIZZINESS [None]
  - FALL [None]
  - FEELING ABNORMAL [None]
  - FEELING HOT AND COLD [None]
  - HEAD INJURY [None]
  - HEADACHE [None]
  - HOT FLUSH [None]
  - NAUSEA [None]
  - ORTHOSTATIC HYPOTENSION [None]
  - PAIN [None]
  - PAIN IN EXTREMITY [None]
